FAERS Safety Report 6675050-5 (Version None)
Quarter: 2010Q2

REPORT INFORMATION
  Report Type: 
  Country: None (occurrence: None)
  Receive Date: 20100409
  Receipt Date: 20100406
  Transmission Date: 20101027
  Serious: Yes (Hospitalization)
  Sender: FDA-Public Use
  Company Number: US-ALEXION-A201000152

PATIENT
  Sex: Female

DRUGS (6)
  1. SOLIRIS [Suspect]
     Indication: PAROXYSMAL NOCTURNAL HAEMOGLOBINURIA
     Dosage: 600 MG, QW
     Route: 042
     Dates: start: 20090601, end: 20090101
  2. SOLIRIS [Suspect]
     Dosage: 900 MG, Q2W
     Route: 042
     Dates: start: 20090101
  3. PROGRAF [Concomitant]
     Indication: LIVER TRANSPLANT
     Dosage: 2.5 MG, QD
     Route: 048
  4. FRAGMIN [Concomitant]
     Indication: PAROXYSMAL NOCTURNAL HAEMOGLOBINURIA
     Dosage: 12500 UNITS, UNK
     Route: 058
     Dates: end: 20100201
  5. PROTONIX                           /01263201/ [Concomitant]
     Dosage: UNK
     Route: 048
  6. COUMADIN [Concomitant]
     Dosage: UNK
     Route: 048
     Dates: start: 20100201

REACTIONS (4)
  - CELLULITIS [None]
  - DIARRHOEA [None]
  - HAEMOGLOBIN DECREASED [None]
  - PRURITUS [None]
